FAERS Safety Report 4494561-4 (Version None)
Quarter: 2004Q4

REPORT INFORMATION
  Report Type: 
  Country: None (occurrence: None)
  Receive Date: 20041105
  Receipt Date: 20041007
  Transmission Date: 20050328
  Serious: Yes (Hospitalization, Disabling)
  Sender: FDA-Public Use
  Company Number: DE-MERCK-0410DEU00236

PATIENT
  Age: 75 Year
  Sex: Male
  Weight: 89 kg

DRUGS (2)
  1. VIOXX [Suspect]
     Indication: HIP ARTHROPLASTY
     Route: 048
     Dates: start: 20020401, end: 20040301
  2. VIOXX [Suspect]
     Indication: LOCALISED OSTEOARTHRITIS
     Route: 048
     Dates: start: 20020401, end: 20040301

REACTIONS (3)
  - AORTIC VALVE STENOSIS [None]
  - CARDIOMYOPATHY [None]
  - CORONARY ARTERY DISEASE [None]
